FAERS Safety Report 15281158 (Version 2)
Quarter: 2018Q3

REPORT INFORMATION
  Report Type: Spontaneous
  Country: US (occurrence: US)
  Receive Date: 20180815
  Receipt Date: 20180816
  Transmission Date: 20181010
  Serious: Yes (Hospitalization)
  Sender: FDA-Public Use
  Company Number: US-SUCAMPO PHARMACEUTICALS INC.-SPI201800155

PATIENT

DRUGS (9)
  1. METOPROLOL SUCCINATE. [Concomitant]
     Active Substance: METOPROLOL SUCCINATE
     Indication: HYPERTENSION
     Dosage: 100 MG, QD
     Route: 048
  2. AMITIZA [Suspect]
     Active Substance: LUBIPROSTONE
     Indication: CONSTIPATION
     Dosage: 24 MCG, BID
     Dates: start: 20180211, end: 20180222
  3. AMITIZA [Suspect]
     Active Substance: LUBIPROSTONE
     Dosage: 24 MCG, BID
     Route: 048
     Dates: start: 201805, end: 20180801
  4. METFORMIN HYDROCHLOROIE [Concomitant]
     Indication: DIABETES MELLITUS
     Dosage: 500 MG, BID FOR ^4?5 YEARS^
     Route: 048
  5. HYDROCHLOROTHIAZIDE. [Concomitant]
     Active Substance: HYDROCHLOROTHIAZIDE
     Indication: SALT CRAVING
     Dosage: UNK, PRN
     Route: 048
     Dates: start: 201708, end: 20180214
  6. METFORMIN HYDROCHLOROIE [Concomitant]
     Dosage: 500 MG, UNK
     Route: 048
  7. VALIUM [Concomitant]
     Active Substance: DIAZEPAM
     Indication: ANXIETY
     Dosage: 5 MG, PRN (SINCE ^1990^S)
     Route: 048
  8. VALIUM [Concomitant]
     Active Substance: DIAZEPAM
     Dosage: 5 MG, UNK
     Route: 048
  9. HYDROMORPHONE HYDROCHLORIDE. [Concomitant]
     Active Substance: HYDROMORPHONE HYDROCHLORIDE
     Indication: PAIN
     Dosage: 5 MG, Q 4 HOURS FOR ^1.5 YEARS^
     Route: 048

REACTIONS (13)
  - Hyperhidrosis [Recovering/Resolving]
  - Blood potassium decreased [Recovered/Resolved]
  - Dyspepsia [Recovering/Resolving]
  - Oedema peripheral [Not Recovered/Not Resolved]
  - Abdominal distension [Recovering/Resolving]
  - Weight increased [Recovered/Resolved]
  - Drug ineffective [Unknown]
  - Throat tightness [Recovering/Resolving]
  - Headache [Recovered/Resolved]
  - Urinary tract infection [Recovered/Resolved]
  - Fluid retention [Recovered/Resolved]
  - Flatulence [Recovering/Resolving]
  - Joint lock [Recovered/Resolved]

NARRATIVE: CASE EVENT DATE: 2018
